FAERS Safety Report 10946208 (Version 3)
Quarter: 2015Q2

REPORT INFORMATION
  Report Type: Report from Study
  Country: US (occurrence: US)
  Receive Date: 20150323
  Receipt Date: 20150505
  Transmission Date: 20150821
  Serious: Yes (Other)
  Sender: FDA-Public Use
  Company Number: US-GILEAD-2015-0142713

PATIENT
  Age: 39 Year
  Sex: Female

DRUGS (4)
  1. TYVASO [Suspect]
     Active Substance: TREPROSTINIL
     Indication: PRODUCT USED FOR UNKNOWN INDICATION
     Dosage: UNK
     Route: 065
     Dates: end: 20150315
  2. AMBRISENTAN [Suspect]
     Active Substance: AMBRISENTAN
     Indication: PRODUCT USED FOR UNKNOWN INDICATION
     Dosage: 10 MG, QD
     Route: 065
     Dates: start: 20100819
  3. VIAGRA [Concomitant]
     Active Substance: SILDENAFIL CITRATE
  4. TYVASO [Suspect]
     Active Substance: TREPROSTINIL
     Dosage: 4 DF, QID
     Route: 055

REACTIONS (4)
  - Headache [Unknown]
  - Musculoskeletal chest pain [Unknown]
  - Systemic lupus erythematosus [Unknown]
  - Chest pain [Unknown]
